FAERS Safety Report 8570767-X (Version None)
Quarter: 2012Q3

REPORT INFORMATION
  Report Type: 
  Country: None (occurrence: None)
  Receive Date: 20120805
  Receipt Date: 20120727
  Transmission Date: 20120928
  Serious: Yes (Other)
  Sender: FDA-Public Use
  Company Number: US-009507513-2012SP022931

PATIENT

DRUGS (1)
  1. NASONEX [Suspect]
     Indication: HYPERSENSITIVITY
     Dates: start: 20000101

REACTIONS (4)
  - PAIN [None]
  - METAL POISONING [None]
  - HEADACHE [None]
  - APHONIA [None]
